FAERS Safety Report 15798677 (Version 1)
Quarter: 2019Q1

REPORT INFORMATION
  Report Type: Spontaneous
  Country: US (occurrence: US)
  Receive Date: 20190108
  Receipt Date: 20190108
  Transmission Date: 20190417
  Serious: Yes (Other)
  Sender: FDA-Public Use
  Company Number: None

PATIENT
  Age: 10 Year
  Sex: Female
  Weight: 43.65 kg

DRUGS (1)
  1. MIRALAX [Suspect]
     Active Substance: POLYETHYLENE GLYCOL 3350
     Indication: CONSTIPATION
     Dosage: ?          QUANTITY:1 CAPFUL;?
     Route: 048
     Dates: start: 20171201, end: 20190108

REACTIONS (3)
  - Anxiety [None]
  - Depression [None]
  - Tic [None]

NARRATIVE: CASE EVENT DATE: 20181201
